FAERS Safety Report 6105920-8 (Version None)
Quarter: 2009Q1

REPORT INFORMATION
  Report Type: 
  Country: None (occurrence: None)
  Receive Date: 20090306
  Receipt Date: 20061120
  Transmission Date: 20090719
  Serious: No
  Sender: FDA-Public Use
  Company Number: US-BRISTOL-MYERS SQUIBB COMPANY-13584875

PATIENT
  Sex: Female
  Weight: 82 kg

DRUGS (9)
  1. PACLITAXEL [Suspect]
     Indication: BREAST CANCER
     Route: 042
     Dates: start: 20060601
  2. PRILOSEC [Concomitant]
  3. LIPITOR [Concomitant]
  4. ZETIA [Concomitant]
  5. ASTELIN [Concomitant]
  6. FLONASE [Concomitant]
  7. SYNTHROID [Concomitant]
  8. LYRICA [Concomitant]
  9. OXYCODONE HCL [Concomitant]

REACTIONS (5)
  - ANAPHYLACTIC SHOCK [None]
  - BACK PAIN [None]
  - BONE PAIN [None]
  - NAIL DISORDER [None]
  - PHOTOPSIA [None]
